FAERS Safety Report 20281291 (Version 5)
Quarter: 2023Q1

REPORT INFORMATION
  Report Type: Report from Study
  Country: DE (occurrence: None)
  Receive Date: 20220103
  Receipt Date: 20230306
  Transmission Date: 20230417
  Serious: Yes (Hospitalization)
  Sender: FDA-Public Use
  Company Number: DE-ROCHE-2962316

PATIENT
  Age: 29 Year
  Sex: Female
  Weight: 79.5 kg

DRUGS (14)
  1. ATEZOLIZUMAB [Suspect]
     Active Substance: ATEZOLIZUMAB
     Indication: Triple negative breast cancer
     Dosage: DATE OF LAST DOSE PRIOR TO SAE: 20/OCT/2021
     Route: 041
     Dates: start: 20211006
  2. PACLITAXEL [Suspect]
     Active Substance: PACLITAXEL
     Indication: Triple negative breast cancer
     Dosage: DATE OF LAST DOSE PRIOR TO SAE: 03/NOV/2021?DATE OF LAST DOSE PRIOR TO SAE: 10/NOV/2021?DATE OF LAST
     Route: 042
     Dates: start: 20211020
  3. CARBOPLATIN [Suspect]
     Active Substance: CARBOPLATIN
     Indication: Triple negative breast cancer
     Dosage: DATE OF LAST DOSE PRIOR TO SAE: 03/NOV/2021?DATE OF LAST DOSE PRIOR TO SAE: 10/NOV/2021?DATE OF LAST
     Route: 042
     Dates: start: 20211020
  4. PASPERTIN [Concomitant]
     Dates: start: 20211006
  5. MERIDOL (GERMANY) [Concomitant]
     Dates: start: 20211006
  6. IMODIUM [Concomitant]
     Active Substance: LOPERAMIDE HYDROCHLORIDE
     Dates: start: 20211006
  7. ELOTRANS [Concomitant]
     Dates: start: 20211006
  8. NOVALGIN (METAMIZOLE SODIUM) [Concomitant]
     Active Substance: METAMIZOLE SODIUM
     Dates: start: 20211008
  9. DEXA (GERMANY) [Concomitant]
     Dates: start: 20211020
  10. ACETAMINOPHEN [Concomitant]
     Active Substance: ACETAMINOPHEN
     Dates: start: 20211020
  11. OXYGEN [Concomitant]
     Active Substance: OXYGEN
  12. DIMETHINDENE MALEATE [Concomitant]
     Active Substance: DIMETHINDENE MALEATE
  13. GENTAMICIN [Concomitant]
     Active Substance: GENTAMICIN
  14. PREDNISOLONE [Concomitant]
     Active Substance: PREDNISOLONE

REACTIONS (3)
  - Pyrexia [Recovered/Resolved]
  - Headache [Unknown]
  - Pyrexia [Recovered/Resolved]

NARRATIVE: CASE EVENT DATE: 20211103
